FAERS Safety Report 9000956 (Version 1)
Quarter: 2013Q1

REPORT INFORMATION
  Report Type: Spontaneous
  Country: PK (occurrence: PK)
  Receive Date: 20130107
  Receipt Date: 20130107
  Transmission Date: 20140127
  Serious: Yes (Death)
  Sender: FDA-Public Use
  Company Number: PHHY2013PK001366

PATIENT
  Age: 84 Year
  Sex: Male

DRUGS (1)
  1. ACLASTA [Suspect]
     Indication: OSTEOPOROSIS
     Dosage: UNKNOWN DOSE YEARLY
     Route: 042
     Dates: start: 20120118

REACTIONS (3)
  - Death [Fatal]
  - Dizziness [Unknown]
  - Lethargy [Unknown]
